FAERS Safety Report 10207666 (Version 1)
Quarter: 2014Q2

REPORT INFORMATION
  Report Type: Spontaneous
  Country: US (occurrence: US)
  Receive Date: 20140530
  Receipt Date: 20140530
  Transmission Date: 20141212
  Serious: Yes (Other)
  Sender: FDA-Public Use
  Company Number: US-GLAXOSMITHKLINE-A1053930A

PATIENT
  Sex: Female

DRUGS (3)
  1. VENTOLIN HFA [Suspect]
     Indication: DYSPNOEA
     Dosage: 2PUFF UNKNOWN
     Route: 055
     Dates: start: 20110707
  2. ADVAIR HFA [Suspect]
     Indication: CHRONIC OBSTRUCTIVE PULMONARY DISEASE
     Route: 065
     Dates: start: 20110707
  3. SPIRIVA [Concomitant]

REACTIONS (4)
  - Ill-defined disorder [Unknown]
  - Dyspnoea [Unknown]
  - Drug administration error [Unknown]
  - Cellulitis [Unknown]
